FAERS Safety Report 4744802-0 (Version None)
Quarter: 2005Q3

REPORT INFORMATION
  Report Type: 
  Country: None (occurrence: None)
  Receive Date: 20050811
  Receipt Date: 20050805
  Transmission Date: 20060218
  Serious: Yes (Hospitalization)
  Sender: FDA-Public Use
  Company Number: 216336

PATIENT
  Age: 48 Year
  Sex: Male
  Weight: 66.9 kg

DRUGS (2)
  1. AVASTIN [Suspect]
     Indication: GLIOBLASTOMA MULTIFORME
     Dosage: 10 MG/KG, Q2W
     Route: 042
     Dates: start: 20050712
  2. IRINOTECAN HCL [Suspect]
     Indication: GLIOBLASTOMA MULTIFORME
     Dosage: 340 MG/M2
     Route: 042
     Dates: start: 20050712

REACTIONS (1)
  - SOMNOLENCE [None]
